FAERS Safety Report 25238614 (Version 2)
Quarter: 2025Q2

REPORT INFORMATION
  Report Type: Report from Study
  Country: IT (occurrence: IT)
  Receive Date: 20250425
  Receipt Date: 20250516
  Transmission Date: 20250717
  Serious: No
  Sender: ROCHE
  Company Number: IT-ROCHE-10000263404

PATIENT
  Age: 53 Year
  Sex: Female

DRUGS (4)
  1. OCRELIZUMAB [Suspect]
     Active Substance: OCRELIZUMAB
     Indication: Relapsing-remitting multiple sclerosis
     Dosage: LAST DOSE OCRELIZUMAB ADMINISTERED PRIOR TO AE ONSET (MG) 600
     Route: 042
     Dates: start: 20240726
  2. CARNITINE [Concomitant]
     Active Substance: CARNITINE
     Route: 048
     Dates: start: 202411
  3. CREATINE [Concomitant]
     Active Substance: CREATINE
     Route: 048
     Dates: start: 202411
  4. FORMOTEROL FUMARATE DIHYDRATE [Concomitant]
     Active Substance: FORMOTEROL FUMARATE DIHYDRATE
     Indication: Asthma
     Route: 055
     Dates: start: 202411

REACTIONS (1)
  - Infusion related reaction [Recovered/Resolved]

NARRATIVE: CASE EVENT DATE: 20250228
